FAERS Safety Report 7321147-6 (Version None)
Quarter: 2011Q1

REPORT INFORMATION
  Report Type: 
  Country: None (occurrence: None)
  Receive Date: 20110228
  Receipt Date: 20110223
  Transmission Date: 20110831
  Serious: Yes (Hospitalization)
  Sender: FDA-Public Use
  Company Number: NO-PFIZER INC-2011032068

PATIENT
  Age: 69 Year
  Sex: Female
  Weight: 69 kg

DRUGS (2)
  1. BLINDED THERAPY [Suspect]
     Dosage: UNK
     Dates: start: 20100519, end: 20100818
  2. EPIRUBICIN HYDROCHLORIDE [Suspect]
     Dosage: 110MG
     Route: 065
     Dates: start: 20100825

REACTIONS (5)
  - DYSPNOEA [None]
  - PAIN [None]
  - DEHYDRATION [None]
  - SYNCOPE [None]
  - VOMITING [None]
